FAERS Safety Report 5600043-6 (Version None)
Quarter: 2007Q4

REPORT INFORMATION
  Report Type: 
  Country: None (occurrence: None)
  Receive Date: 20071226
  Receipt Date: 20070214
  Transmission Date: 20080405
  Serious: Yes (Other)
  Sender: FDA-Public Use
  Company Number: 2007-0011310

PATIENT
  Sex: Male

DRUGS (1)
  1. VIREAD [Suspect]
     Dosage: 400 MG

REACTIONS (1)
  - PANCREATITIS [None]
